FAERS Safety Report 14471392 (Version 1)
Quarter: 2018Q1

REPORT INFORMATION
  Report Type: Spontaneous
  Country: US (occurrence: US)
  Receive Date: 20180131
  Receipt Date: 20180131
  Transmission Date: 20180509
  Serious: Yes (Death)
  Sender: FDA-Public Use
  Company Number: None

PATIENT
  Age: 53 Year
  Sex: Male
  Weight: 102 kg

DRUGS (3)
  1. CLONIDINE HCL [Concomitant]
     Active Substance: CLONIDINE HYDROCHLORIDE
  2. CEFAZOLIN 1000MG [Suspect]
     Active Substance: CEFAZOLIN
     Indication: CELLULITIS
     Route: 042
     Dates: start: 20180112, end: 20180112
  3. MIRCERA [Suspect]
     Active Substance: METHOXY POLYETHYLENE GLYCOL-EPOETIN BETA
     Indication: NEPHROGENIC ANAEMIA
     Dosage: 50 MCG EVERY 2 WEEKS INTRAVENOUS PUSH
     Route: 042
     Dates: start: 20180112, end: 20180112

REACTIONS (5)
  - Asthenia [None]
  - Blood pressure decreased [None]
  - Pruritus [None]
  - Nausea [None]
  - Unresponsive to stimuli [None]

NARRATIVE: CASE EVENT DATE: 20180112
